FAERS Safety Report 19228321 (Version 2)
Quarter: 2021Q2

REPORT INFORMATION
  Report Type: Spontaneous
  Country: AE (occurrence: AE)
  Receive Date: 20210507
  Receipt Date: 20210521
  Transmission Date: 20210717
  Serious: Yes (Other)
  Sender: FDA-Public Use
  Company Number: AE-ALIMERA SCIENCES INC.-AE-A16013-21-000091

PATIENT

DRUGS (1)
  1. ILUVIEN [Suspect]
     Active Substance: FLUOCINOLONE ACETONIDE
     Indication: UVEITIS
     Dosage: 0.25 MICROGRAM, QD ? UNKNOWN EYE
     Route: 031

REACTIONS (2)
  - Off label use [Unknown]
  - Macular fibrosis [Unknown]
